FAERS Safety Report 13964023 (Version 3)
Quarter: 2019Q1

REPORT INFORMATION
  Report Type: Spontaneous
  Country: US (occurrence: US)
  Receive Date: 20170913
  Receipt Date: 20190228
  Transmission Date: 20190417
  Serious: Yes (Hospitalization, Other)
  Sender: FDA-Public Use
  Company Number: US-EMD SERONO-7030644

PATIENT
  Age: 47 Year
  Sex: Female

DRUGS (5)
  1. REBIF [Suspect]
     Active Substance: INTERFERON BETA-1A
     Route: 058
     Dates: start: 20190107
  2. TYLENOL [Concomitant]
     Active Substance: ACETAMINOPHEN
     Indication: PREMEDICATION
  3. ACTHAR [Concomitant]
     Active Substance: CORTICOTROPIN
     Indication: MULTIPLE SCLEROSIS
     Dosage: YEARS AGO
     Dates: end: 201606
  4. GILENYA [Suspect]
     Active Substance: FINGOLIMOD HYDROCHLORIDE
     Indication: MULTIPLE SCLEROSIS
  5. REBIF [Suspect]
     Active Substance: INTERFERON BETA-1A
     Indication: MULTIPLE SCLEROSIS
     Route: 058
     Dates: start: 20101201, end: 20101204

REACTIONS (11)
  - Arteriosclerosis [Unknown]
  - Fatigue [Unknown]
  - Injection site reaction [Unknown]
  - Asthenia [Unknown]
  - Pain in extremity [Unknown]
  - Influenza like illness [Unknown]
  - Cardiac failure congestive [Unknown]
  - Back pain [Unknown]
  - Anaphylactic shock [Recovering/Resolving]
  - Cardiomegaly [Unknown]
  - Left ventricle outflow tract obstruction [Unknown]

NARRATIVE: CASE EVENT DATE: 201012
